FAERS Safety Report 13420670 (Version 2)
Quarter: 2017Q3

REPORT INFORMATION
  Report Type: Spontaneous
  Country: US (occurrence: US)
  Receive Date: 20170409
  Receipt Date: 20170928
  Transmission Date: 20171127
  Serious: No
  Sender: FDA-Public Use
  Company Number: US-TEVA-753538ACC

PATIENT
  Sex: Male

DRUGS (1)
  1. SYNRIBO [Suspect]
     Active Substance: OMACETAXINE MEPESUCCINATE
     Indication: CHRONIC MYELOID LEUKAEMIA
     Dosage: DOSAGE: 2.9MG/0.83ML
     Dates: start: 20151023

REACTIONS (4)
  - Nausea [Unknown]
  - Pain [Unknown]
  - Abdominal pain [Unknown]
  - Vomiting [Unknown]
